FAERS Safety Report 7775518-4 (Version None)
Quarter: 2011Q3

REPORT INFORMATION
  Report Type: 
  Country: None (occurrence: None)
  Receive Date: 20110923
  Receipt Date: 20110919
  Transmission Date: 20111222
  Serious: Yes (Hospitalization)
  Sender: FDA-Public Use
  Company Number: AT-ROCHE-803442

PATIENT
  Age: 71 Year
  Sex: Female

DRUGS (2)
  1. CARVEDILOL [Concomitant]
     Dates: start: 20100101
  2. VEMURAFENIB [Suspect]
     Route: 048
     Dates: start: 20110901, end: 20110917

REACTIONS (1)
  - TOXICITY TO VARIOUS AGENTS [None]
